FAERS Safety Report 10970017 (Version 2)
Quarter: 2016Q2

REPORT INFORMATION
  Report Type: Spontaneous
  Country: US (occurrence: US)
  Receive Date: 20150331
  Receipt Date: 20160608
  Transmission Date: 20160815
  Serious: No
  Sender: FDA-Public Use
  Company Number: US-JNJFOC-20150315816

PATIENT
  Sex: Male

DRUGS (6)
  1. RISPERDAL [Suspect]
     Active Substance: RISPERIDONE
     Indication: MENTAL DISORDER
     Dosage: 1MG, 2MG
     Route: 048
     Dates: start: 2004, end: 2006
  2. INVEGA [Suspect]
     Active Substance: PALIPERIDONE
     Indication: ABNORMAL BEHAVIOUR
     Dosage: 3MG TO 6MG
     Route: 048
     Dates: start: 2006, end: 201409
  3. INVEGA [Suspect]
     Active Substance: PALIPERIDONE
     Indication: MENTAL DISORDER
     Dosage: 3MG TO 6MG
     Route: 048
     Dates: start: 2006, end: 201409
  4. RISPERDAL CONSTA [Suspect]
     Active Substance: RISPERIDONE
     Indication: MENTAL DISORDER
     Route: 030
     Dates: start: 2004
  5. RISPERDAL CONSTA [Suspect]
     Active Substance: RISPERIDONE
     Indication: ABNORMAL BEHAVIOUR
     Route: 030
     Dates: start: 2004
  6. RISPERDAL [Suspect]
     Active Substance: RISPERIDONE
     Indication: ABNORMAL BEHAVIOUR
     Dosage: 1MG, 2MG
     Route: 048
     Dates: start: 2004, end: 2006

REACTIONS (3)
  - Migraine [Unknown]
  - Gynaecomastia [Unknown]
  - Abnormal weight gain [Unknown]

NARRATIVE: CASE EVENT DATE: 2009
